FAERS Safety Report 23783973 (Version 1)
Quarter: 2024Q2

REPORT INFORMATION
  Report Type: Spontaneous
  Country: CA (occurrence: CA)
  Receive Date: 20240425
  Receipt Date: 20240425
  Transmission Date: 20240716
  Serious: Yes (Other)
  Sender: FDA-Public Use
  Company Number: CA-TEVA-VS-3188911

PATIENT
  Age: 27 Year
  Sex: Female

DRUGS (1)
  1. PREDNISONE [Suspect]
     Active Substance: PREDNISONE
     Indication: Autoimmune disorder
     Route: 048

REACTIONS (6)
  - Negative thoughts [Unknown]
  - Agitation [Unknown]
  - Asthenia [Unknown]
  - Energy increased [Unknown]
  - Mood swings [Unknown]
  - Affect lability [Unknown]
